FAERS Safety Report 7804269-2 (Version None)
Quarter: 2011Q4

REPORT INFORMATION
  Report Type: 
  Country: None (occurrence: None)
  Receive Date: 20111010
  Receipt Date: 20110926
  Transmission Date: 20120403
  Serious: Yes (Other)
  Sender: FDA-Public Use
  Company Number: PHHY2011BR86496

PATIENT
  Age: 69 Year
  Sex: Male
  Weight: 103 kg

DRUGS (4)
  1. AMLODIPINE [Suspect]
     Dosage: 5 MG, PER DAY
  2. DIOVAN [Suspect]
     Indication: HYPERTENSION
     Dosage: 160 MG, DAILY
  3. ROSUVASTATIN [Suspect]
     Dosage: 10 MG, PER DAY
  4. DIOVAN [Suspect]
     Dosage: 320 MG, DAILY

REACTIONS (3)
  - MICROALBUMINURIA [None]
  - LEFT VENTRICULAR FAILURE [None]
  - BLOOD PRESSURE SYSTOLIC INCREASED [None]
